FAERS Safety Report 8227236-6 (Version None)
Quarter: 2012Q1

REPORT INFORMATION
  Report Type: 
  Country: None (occurrence: None)
  Receive Date: 20120322
  Receipt Date: 20120307
  Transmission Date: 20120608
  Serious: Yes (Other)
  Sender: FDA-Public Use
  Company Number: TR-AMGEN-TURSP2012015848

PATIENT
  Age: 52 Year
  Sex: Female

DRUGS (1)
  1. ENBREL [Suspect]
     Indication: RHEUMATOID ARTHRITIS
     Dosage: 50 MG, WEEKLY
     Route: 058
     Dates: start: 20080715, end: 20120201

REACTIONS (8)
  - BLOOD PRESSURE ABNORMAL [None]
  - DENTAL CARIES [None]
  - SWELLING FACE [None]
  - PAIN IN EXTREMITY [None]
  - TOOTH INFECTION [None]
  - INFLUENZA [None]
  - TOOTH ABSCESS [None]
  - HEADACHE [None]
